FAERS Safety Report 5868478-4 (Version None)
Quarter: 2008Q3

REPORT INFORMATION
  Report Type: 
  Country: None (occurrence: None)
  Receive Date: 20080902
  Receipt Date: 20080902
  Transmission Date: 20090109
  Serious: Yes (Life-Threatening, Hospitalization)
  Sender: FDA-Public Use
  Company Number: None

PATIENT
  Sex: Male
  Weight: 90.7194 kg

DRUGS (1)
  1. CHANTIX [Suspect]
     Indication: SMOKING CESSATION THERAPY
     Dosage: 1 PER DAY, AND THEN 2 PER DAY
     Dates: start: 20070307, end: 20070415

REACTIONS (3)
  - DECREASED INTEREST [None]
  - DEPRESSION [None]
  - SUICIDAL IDEATION [None]
